FAERS Safety Report 13189223 (Version 1)
Quarter: 2017Q1

REPORT INFORMATION
  Report Type: Spontaneous
  Country: JP (occurrence: JP)
  Receive Date: 20170206
  Receipt Date: 20170206
  Transmission Date: 20170428
  Serious: No
  Sender: FDA-Public Use
  Company Number: JP-PFIZER INC-2017031837

PATIENT
  Age: 80 Year
  Sex: Female

DRUGS (1)
  1. FOSPHENYTOIN SODIUM. [Suspect]
     Active Substance: FOSPHENYTOIN SODIUM
     Indication: EPILEPSY
     Dosage: UNK

REACTIONS (1)
  - Drug eruption [Recovering/Resolving]
